FAERS Safety Report 21302826 (Version 1)
Quarter: 2022Q3

REPORT INFORMATION
  Report Type: Spontaneous
  Country: US (occurrence: None)
  Receive Date: 20220907
  Receipt Date: 20220907
  Transmission Date: 20221027
  Serious: Yes (Hospitalization)
  Sender: FDA-Public Use
  Company Number: None

PATIENT
  Sex: Male

DRUGS (2)
  1. TEMOZOLOMIDE [Suspect]
     Active Substance: TEMOZOLOMIDE
     Indication: Brain neoplasm malignant
     Dosage: 250MG ORAL??TAKE 1 CAPSULE BY MOUTH 1 TIME A DAY FOR 5 DAYS OF 28 DAY CYCLE. (TOTAL DAILY DOSE OF 39
     Route: 048
     Dates: start: 20220822
  2. TEMOZOLOMIDE [Suspect]
     Active Substance: TEMOZOLOMIDE
     Indication: Brain neoplasm malignant
     Dosage: 140MG ORAL??TAKE 1 CAPSULE BY MOUTH 1 TIME A DAY FOR 5 DAYS OF 28 DAY CYCLE. (TOTAL DAILY DOSE OF 39
     Route: 048
     Dates: start: 20220822

REACTIONS (2)
  - Ketoacidosis [None]
  - Sepsis [None]
